FAERS Safety Report 6982068-1 (Version None)
Quarter: 2010Q3

REPORT INFORMATION
  Report Type: 
  Country: None (occurrence: None)
  Receive Date: 20100914
  Receipt Date: 20091208
  Transmission Date: 20110219
  Serious: No
  Sender: FDA-Public Use
  Company Number: US-PFIZER INC-2009291271

PATIENT
  Sex: Female
  Weight: 54 kg

DRUGS (2)
  1. LYRICA [Suspect]
     Indication: FIBROMYALGIA
     Dosage: 75 MG, 2X/DAY
     Dates: start: 20090820
  2. CELEBREX [Concomitant]
     Dosage: 200 MG, 2X/DAY

REACTIONS (26)
  - ABNORMAL DREAMS [None]
  - AGITATION [None]
  - ASTHENIA [None]
  - CONSTIPATION [None]
  - COORDINATION ABNORMAL [None]
  - DIARRHOEA [None]
  - DISTURBANCE IN ATTENTION [None]
  - DIZZINESS [None]
  - DRY MOUTH [None]
  - FATIGUE [None]
  - FLATULENCE [None]
  - GAIT DISTURBANCE [None]
  - HEADACHE [None]
  - HYPOAESTHESIA [None]
  - INCREASED APPETITE [None]
  - JOINT SWELLING [None]
  - MENTAL STATUS CHANGES [None]
  - MOOD ALTERED [None]
  - NUCHAL RIGIDITY [None]
  - OEDEMA PERIPHERAL [None]
  - SOMNOLENCE [None]
  - SPEECH DISORDER [None]
  - URINARY INCONTINENCE [None]
  - VERTIGO [None]
  - VISION BLURRED [None]
  - WEIGHT INCREASED [None]
